FAERS Safety Report 24680222 (Version 4)
Quarter: 2025Q3

REPORT INFORMATION
  Report Type: Report from Study
  Country: US (occurrence: US)
  Receive Date: 20241129
  Receipt Date: 20250802
  Transmission Date: 20251021
  Serious: Yes (Hospitalization, Other)
  Sender: ALEXION PHARMACEUTICALS
  Company Number: US-AstraZeneca-CH-00750508A

PATIENT
  Weight: 66.82 kg

DRUGS (1)
  1. ACALABRUTINIB [Suspect]
     Active Substance: ACALABRUTINIB

REACTIONS (16)
  - Chronic lymphocytic leukaemia [Unknown]
  - Pancreatitis acute [Unknown]
  - Acute kidney injury [Unknown]
  - General physical health deterioration [Unknown]
  - Splenomegaly [Unknown]
  - Headache [Unknown]
  - Anaemia [Unknown]
  - Constipation [Unknown]
  - Hypertension [Unknown]
  - Renal disorder [Unknown]
  - Weight decreased [Unknown]
  - Hypercalcaemia of malignancy [Unknown]
  - Blood creatinine increased [Unknown]
  - Lymphocytosis [Unknown]
  - Fatigue [Unknown]
  - Abdominal pain [Unknown]
